FAERS Safety Report 19424825 (Version 1)
Quarter: 2021Q2

REPORT INFORMATION
  Report Type: Other
  Country: US (occurrence: US)
  Receive Date: 20210617
  Receipt Date: 20210617
  Transmission Date: 20210717
  Serious: No
  Sender: FDA-Public Use
  Company Number: US-ROCHE-2741590

PATIENT
  Age: 50 Year
  Sex: Male

DRUGS (8)
  1. TOCILIZUMAB. [Suspect]
     Active Substance: TOCILIZUMAB
     Indication: COVID-19 PNEUMONIA
     Route: 065
  2. CEFEPIME [Concomitant]
     Active Substance: CEFEPIME HYDROCHLORIDE
  3. HYDROXYCHLOROQUINE [Concomitant]
     Active Substance: HYDROXYCHLOROQUINE
  4. AZITHROMYCIN ANHYDROUS. [Concomitant]
     Active Substance: AZITHROMYCIN ANHYDROUS
  5. HYDROCORTISONE. [Concomitant]
     Active Substance: HYDROCORTISONE
  6. VANCOMYCIN [Concomitant]
     Active Substance: VANCOMYCIN
  7. TACROLIMUS. [Concomitant]
     Active Substance: TACROLIMUS
  8. EPOPROSTENOL. [Concomitant]
     Active Substance: EPOPROSTENOL

REACTIONS (3)
  - Intentional product use issue [Unknown]
  - Off label use [Unknown]
  - No adverse event [Unknown]
